FAERS Safety Report 4778813-6 (Version None)
Quarter: 2005Q3

REPORT INFORMATION
  Report Type: 
  Country: None (occurrence: None)
  Receive Date: 20050923
  Receipt Date: 20050912
  Transmission Date: 20060218
  Serious: Yes (Other)
  Sender: FDA-Public Use
  Company Number: GXKR2005DK01587

PATIENT
  Age: 70 Year
  Sex: Male

DRUGS (1)
  1. ISONIAZID [Suspect]
     Indication: TUBERCULOSIS

REACTIONS (6)
  - DEMYELINATION [None]
  - DRUG TOXICITY [None]
  - MUSCLE ATROPHY [None]
  - MUSCLE HYPERTROPHY [None]
  - NERVE DEGENERATION [None]
  - NEUROPATHY PERIPHERAL [None]
